FAERS Safety Report 15089005 (Version 4)
Quarter: 2019Q4

REPORT INFORMATION
  Report Type: Spontaneous
  Country: US (occurrence: US)
  Receive Date: 20180629
  Receipt Date: 20191213
  Transmission Date: 20200122
  Serious: No
  Sender: FDA-Public Use
  Company Number: US-SA-2018SA165473

PATIENT
  Age: 39 Year
  Sex: Male

DRUGS (1)
  1. DUPIXENT [Suspect]
     Active Substance: DUPILUMAB
     Indication: DERMATITIS ATOPIC
     Dosage: 300 MG, QOW
     Route: 058
     Dates: start: 20170531

REACTIONS (16)
  - Eye discharge [Unknown]
  - Eye pruritus [Recovered/Resolved]
  - Swelling of eyelid [Unknown]
  - Erythema [Unknown]
  - Vision blurred [Recovered/Resolved]
  - Dermatitis atopic [Unknown]
  - Ocular hyperaemia [Recovered/Resolved]
  - Blood pressure decreased [Recovering/Resolving]
  - Dry eye [Unknown]
  - Eye disorder [Recovered/Resolved]
  - Fatigue [Unknown]
  - Lacrimation increased [Recovered/Resolved]
  - Weight decreased [Unknown]
  - Vitamin B12 decreased [Unknown]
  - Eyelid irritation [Recovered/Resolved]
  - Onychoclasis [Unknown]

NARRATIVE: CASE EVENT DATE: 20180305
